FAERS Safety Report 4825742-5 (Version None)
Quarter: 2005Q4

REPORT INFORMATION
  Report Type: 
  Country: None (occurrence: None)
  Receive Date: 20051109
  Receipt Date: 20051007
  Transmission Date: 20060501
  Serious: Yes (Other)
  Sender: FDA-Public Use
  Company Number: OMPQ-PR-0510S-1332

PATIENT
  Sex: Female

DRUGS (1)
  1. OMNIPAQUE 140 [Suspect]
     Indication: INTERVERTEBRAL DISC DISORDER
     Dosage: SINGLE DOSE, I.T.
     Dates: start: 20050216, end: 20050216

REACTIONS (7)
  - ARACHNOIDITIS [None]
  - FATIGUE [None]
  - HEADACHE [None]
  - MUSCULOSKELETAL STIFFNESS [None]
  - NECK PAIN [None]
  - SENSORY DISTURBANCE [None]
  - SHOULDER PAIN [None]
